FAERS Safety Report 17800077 (Version 3)
Quarter: 2020Q4

REPORT INFORMATION
  Report Type: Report from Study
  Country: None (occurrence: US)
  Receive Date: 20200519
  Receipt Date: 20201001
  Transmission Date: 20210113
  Serious: Yes (Hospitalization, Other)
  Sender: FDA-Public Use
  Company Number: US-ABBVIE-20K-163-3405987-00

PATIENT
  Sex: Female
  Weight: 3.75 kg

DRUGS (2)
  1. SYNTHROID [Suspect]
     Active Substance: LEVOTHYROXINE SODIUM
     Indication: THYROIDECTOMY
     Route: 048
  2. SYNTHROID [Suspect]
     Active Substance: LEVOTHYROXINE SODIUM
     Route: 048
     Dates: start: 2005

REACTIONS (20)
  - Cerebral disorder [Unknown]
  - Injury [Unknown]
  - Vertigo [Unknown]
  - Nausea [Recovered/Resolved]
  - Haemorrhage [Recovering/Resolving]
  - Bradycardia [Recovered/Resolved]
  - Thyrotoxic crisis [Recovered/Resolved]
  - Breast cancer female [Recovered/Resolved]
  - Dental care [Recovered/Resolved]
  - Fall [Unknown]
  - Loss of consciousness [Recovered/Resolved]
  - Concussion [Unknown]
  - Brain hypoxia [Unknown]
  - Cardiac disorder [Unknown]
  - Urinary tract infection [Recovering/Resolving]
  - Fall [Recovered/Resolved]
  - Rehabilitation therapy [Recovered/Resolved]
  - Hypersomnia [Recovered/Resolved]
  - Wound [Recovered/Resolved]
  - Body height decreased [Not Recovered/Not Resolved]

NARRATIVE: CASE EVENT DATE: 1990
